FAERS Safety Report 4976044-8 (Version None)
Quarter: 2006Q2

REPORT INFORMATION
  Report Type: 
  Country: None (occurrence: None)
  Receive Date: 20060418
  Receipt Date: 20051122
  Transmission Date: 20061013
  Serious: Yes (Hospitalization)
  Sender: FDA-Public Use
  Company Number: US-MERCK-0511USA04038

PATIENT
  Age: 35 Year
  Sex: Male
  Weight: 95 kg

DRUGS (5)
  1. VIOXX [Suspect]
     Indication: SHOULDER PAIN
     Route: 048
     Dates: start: 20020201, end: 20031001
  2. CELEBREX [Concomitant]
     Route: 048
     Dates: start: 20020201, end: 20031001
  3. IBUPROFEN [Concomitant]
     Route: 065
  4. ADVIL [Concomitant]
     Route: 065
  5. LITHIUM CARBONATE [Concomitant]
     Indication: BIPOLAR I DISORDER
     Route: 065
     Dates: start: 20020101, end: 20030101

REACTIONS (10)
  - BIPOLAR DISORDER [None]
  - DEPRESSION [None]
  - GASTROOESOPHAGEAL REFLUX DISEASE [None]
  - LUNG INFILTRATION [None]
  - LUNG NEOPLASM MALIGNANT [None]
  - MYOCARDIAL INFARCTION [None]
  - NON-CARDIAC CHEST PAIN [None]
  - PALPITATIONS [None]
  - PNEUMONIA [None]
  - POST-TRAUMATIC STRESS DISORDER [None]
